FAERS Safety Report 12539327 (Version 1)
Quarter: 2016Q3

REPORT INFORMATION
  Report Type: Spontaneous
  Country: IT (occurrence: IT)
  Receive Date: 20160708
  Receipt Date: 20160708
  Transmission Date: 20161109
  Serious: Yes (Other)
  Sender: FDA-Public Use
  Company Number: IT-TEVA-672777ACC

PATIENT
  Age: 42 Year
  Sex: Female
  Weight: 75 kg

DRUGS (1)
  1. PACLITAXEL TEVA - 6 MG/ML CONCENTRATO PER SOLUZIONE PER INFUSIONE [Suspect]
     Active Substance: PACLITAXEL
     Indication: OVARIAN CANCER
     Dosage: 300 MG CYCLICAL
     Route: 042
     Dates: start: 20160623, end: 20160623

REACTIONS (6)
  - Erythema [Recovering/Resolving]
  - Salivary hypersecretion [Recovering/Resolving]
  - Nausea [Recovering/Resolving]
  - Chest discomfort [Recovering/Resolving]
  - Infusion related reaction [Recovering/Resolving]
  - Back pain [Recovering/Resolving]

NARRATIVE: CASE EVENT DATE: 20160623
